FAERS Safety Report 7989355-9 (Version None)
Quarter: 2011Q4

REPORT INFORMATION
  Report Type: 
  Country: None (occurrence: None)
  Receive Date: 20111219
  Receipt Date: 20111213
  Transmission Date: 20120403
  Serious: Yes (Other)
  Sender: FDA-Public Use
  Company Number: FR-B.I. PHARMACEUTICALS,INC./RIDGEFIELD-2011-FF-01181FF

PATIENT
  Age: 37 Year
  Sex: Male

DRUGS (1)
  1. SPIRIVA [Suspect]
     Indication: ASTHMA
     Dosage: 18 MCG
     Route: 055
     Dates: start: 20111104

REACTIONS (5)
  - TACHYCARDIA [None]
  - DRY MOUTH [None]
  - DYSPNOEA [None]
  - FEELING COLD [None]
  - ASTHENIA [None]
